FAERS Safety Report 11229061 (Version 3)
Quarter: 2015Q3

REPORT INFORMATION
  Report Type: Spontaneous
  Country: US (occurrence: US)
  Receive Date: 20150630
  Receipt Date: 20150715
  Transmission Date: 20151125
  Serious: No
  Sender: FDA-Public Use
  Company Number: US-PFIZER INC-2015213133

PATIENT
  Age: 35 Year
  Sex: Female
  Weight: 110 kg

DRUGS (2)
  1. FLEXERIL [Interacting]
     Active Substance: CYCLOBENZAPRINE HYDROCHLORIDE
     Dosage: UNK
  2. GABAPENTIN. [Suspect]
     Active Substance: GABAPENTIN
     Indication: NEURALGIA
     Dosage: 1500 MG, UNK (TWO IN THE MORNING, TWO IN AFTERNOON AND TWO TO THREE TIMES A NIGHT)
     Dates: start: 2014, end: 201503

REACTIONS (4)
  - Drug interaction [Unknown]
  - Fatigue [Unknown]
  - Intentional product misuse [Unknown]
  - Somnolence [Unknown]
